FAERS Safety Report 4955641-X (Version None)
Quarter: 2006Q1

REPORT INFORMATION
  Report Type: 
  Country: None (occurrence: None)
  Receive Date: 20060328
  Receipt Date: 20050823
  Transmission Date: 20060701
  Serious: Yes (Hospitalization)
  Sender: FDA-Public Use
  Company Number: US-MERCK-0508USA03879

PATIENT
  Age: 51 Year
  Sex: Male
  Weight: 75 kg

DRUGS (1)
  1. VIOXX [Suspect]
     Indication: ARTHRALGIA
     Route: 048
     Dates: start: 20010316, end: 20040101

REACTIONS (22)
  - ANGINA UNSTABLE [None]
  - ANXIETY [None]
  - AZOTAEMIA [None]
  - CARDIO-RESPIRATORY ARREST [None]
  - CEREBROVASCULAR ACCIDENT [None]
  - CHEST PAIN [None]
  - CHRONIC OBSTRUCTIVE PULMONARY DISEASE [None]
  - CONFUSIONAL STATE [None]
  - CORONARY ARTERY RESTENOSIS [None]
  - DEHYDRATION [None]
  - DEPRESSION [None]
  - DRY SKIN [None]
  - DYSPNOEA EXERTIONAL [None]
  - EMPHYSEMA [None]
  - EPSTEIN-BARR VIRUS INFECTION [None]
  - FATIGUE [None]
  - INTERMITTENT CLAUDICATION [None]
  - NON-CARDIAC CHEST PAIN [None]
  - PAIN [None]
  - PNEUMONIA [None]
  - PRURITUS [None]
  - SKIN ULCER [None]
